FAERS Safety Report 8150526-2 (Version None)
Quarter: 2012Q1

REPORT INFORMATION
  Report Type: 
  Country: None (occurrence: None)
  Receive Date: 20120220
  Receipt Date: 20120215
  Transmission Date: 20120608
  Serious: Yes (Hospitalization)
  Sender: FDA-Public Use
  Company Number: FR-PFIZER INC-2012010115

PATIENT
  Age: 58 Year
  Sex: Male

DRUGS (12)
  1. DIAMICRON [Concomitant]
     Dosage: UNK
  2. RABEPRAZOLE SODIUM [Concomitant]
     Dosage: UNK
     Dates: start: 20111117
  3. CLINDAMYCIN HCL [Suspect]
     Dosage: 600 MG, 3X/DAY
     Route: 048
     Dates: start: 20111202, end: 20111215
  4. PARACETAMOL [Concomitant]
     Dosage: UNK
     Dates: start: 20111117
  5. TEMAZEPAM [Concomitant]
     Dosage: 1 DF, 1X/DAY
     Dates: start: 20111120
  6. GENTAMICIN [Concomitant]
     Dosage: UNK
     Dates: start: 20111117, end: 20111122
  7. ZOSYN [Suspect]
     Dosage: 4 G, 3X/DAY
     Route: 041
     Dates: start: 20111117, end: 20111214
  8. CIPROFLOXACIN HCL [Suspect]
     Dosage: 500 MG, 3X/DAY
     Route: 048
     Dates: start: 20111202, end: 20111215
  9. LEXOMIL [Concomitant]
     Dosage: UNK
  10. FLAGYL [Concomitant]
     Dosage: 500 MG, 3X/DAY
     Dates: start: 20111118, end: 20111122
  11. RAMIPRIL [Concomitant]
     Dosage: UNK
     Dates: end: 20111216
  12. PLAVIX [Concomitant]
     Dosage: UNK
     Dates: start: 20111117

REACTIONS (2)
  - ECZEMA [None]
  - HYPERTHERMIA [None]
